FAERS Safety Report 8821680 (Version 1)
Quarter: 2012Q4

REPORT INFORMATION
  Report Type: Report from Study
  Country: US (occurrence: US)
  Receive Date: 20121002
  Receipt Date: 20121002
  Transmission Date: 20130627
  Serious: Yes (Other)
  Sender: FDA-Public Use
  Company Number: US-ASTELLAS-2012US009769

PATIENT

DRUGS (2)
  1. ERLOTINIB TABLET [Suspect]
     Indication: NON-SMALL CELL LUNG CANCER METASTATIC
     Dosage: 150 mg, UID/QD
     Route: 048
  2. SUNITINIB [Suspect]
     Indication: NON-SMALL CELL LUNG CANCER METASTATIC
     Dosage: 37.5 mg/day, 4 week Cyclic
     Route: 065

REACTIONS (21)
  - Hypokalaemia [Unknown]
  - Diarrhoea [None]
  - Fatigue [None]
  - Pneumonia fungal [None]
  - Sepsis [None]
  - Decreased appetite [None]
  - Acne [None]
  - Cough [None]
  - Dehydration [None]
  - Dyspnoea [None]
  - Nausea [None]
  - Anaemia [None]
  - Asthenia [None]
  - Vomiting [None]
  - Abdominal pain [None]
  - Blood creatinine increased [None]
  - Dyspnoea exertional [None]
  - Paronychia [None]
  - Thrombocytopenia [None]
  - Hypertension [None]
  - Skin toxicity [None]
